FAERS Safety Report 7922546-1 (Version None)
Quarter: 2011Q4

REPORT INFORMATION
  Report Type: 
  Country: None (occurrence: None)
  Receive Date: 20111117
  Receipt Date: 20110119
  Transmission Date: 20120403
  Serious: No
  Sender: FDA-Public Use
  Company Number: US-AMGEN-USASP2011003442

PATIENT
  Age: 48 Year
  Sex: Male

DRUGS (1)
  1. ENBREL [Suspect]
     Indication: PSORIASIS
     Dates: start: 20060101, end: 20110109

REACTIONS (9)
  - SINUS CONGESTION [None]
  - EAR PRURITUS [None]
  - OROPHARYNGEAL PAIN [None]
  - AGEUSIA [None]
  - CHILLS [None]
  - RASH PRURITIC [None]
  - RASH PAPULAR [None]
  - DECREASED APPETITE [None]
  - HYPERHIDROSIS [None]
